FAERS Safety Report 22165676 (Version 1)
Quarter: 2023Q2

REPORT INFORMATION
  Report Type: Spontaneous
  Country: CN (occurrence: CN)
  Receive Date: 20230403
  Receipt Date: 20230403
  Transmission Date: 20230721
  Serious: Yes (Hospitalization, Other)
  Sender: FDA-Public Use
  Company Number: CN-MACLEODS PHARMACEUTICALS US LTD-MAC2022037654

PATIENT

DRUGS (1)
  1. METFORMIN [Suspect]
     Active Substance: METFORMIN HYDROCHLORIDE
     Indication: Weight abnormal
     Dosage: 500 MILLIGRAM, TID
     Route: 065

REACTIONS (3)
  - Liver injury [Recovered/Resolved]
  - Hepatotoxicity [Recovered/Resolved]
  - Drug abuse [Unknown]
